FAERS Safety Report 4499999-7 (Version None)
Quarter: 2004Q4

REPORT INFORMATION
  Report Type: 
  Country: None (occurrence: None)
  Receive Date: 20041112
  Receipt Date: 20041104
  Transmission Date: 20050328
  Serious: Yes (Hospitalization, Other)
  Sender: FDA-Public Use
  Company Number: FR-BRISTOL-MYERS SQUIBB COMPANY-12755906

PATIENT
  Age: 63 Year
  Sex: Male

DRUGS (11)
  1. APROVEL [Suspect]
     Route: 048
     Dates: start: 20040401, end: 20041006
  2. LASILIX [Suspect]
     Route: 048
     Dates: start: 20041003, end: 20041004
  3. RENAGEL [Suspect]
     Indication: PERITONEAL DIALYSIS
     Route: 048
     Dates: start: 20041001, end: 20041004
  4. DIFRAREL [Concomitant]
  5. KAYEXALATE [Concomitant]
  6. INSUMAN COMB 25 [Concomitant]
  7. ARANESP [Concomitant]
  8. AMLOR [Concomitant]
  9. OROCAL D3 [Concomitant]
  10. LASILIX [Concomitant]
  11. ASPEGIC 325 [Concomitant]

REACTIONS (6)
  - ASTHENIA [None]
  - CONVULSION [None]
  - ERYTHEMA [None]
  - NEPHROTIC SYNDROME [None]
  - PRURITUS [None]
  - RENAL FAILURE CHRONIC [None]
